FAERS Safety Report 15159147 (Version 1)
Quarter: 2018Q3

REPORT INFORMATION
  Report Type: Spontaneous
  Country: US (occurrence: US)
  Receive Date: 20180620
  Receipt Date: 20180620
  Transmission Date: 20181010
  Serious: Yes (Hospitalization)
  Sender: FDA-Public Use
  Company Number: None

PATIENT
  Age: 74 Year
  Sex: Female

DRUGS (10)
  1. ESBRIET [Suspect]
     Active Substance: PIRFENIDONE
     Indication: PROSTATE CANCER
     Dosage: LOADING DOSE
     Route: 048
     Dates: start: 20171106
  2. PREDNISONE. [Concomitant]
     Active Substance: PREDNISONE
  3. SMZ?TM [Concomitant]
  4. METFORMIN [Concomitant]
     Active Substance: METFORMIN HYDROCHLORIDE
  5. ESBRIET [Suspect]
     Active Substance: PIRFENIDONE
     Indication: PULMONARY FIBROSIS
     Dosage: DAYS 1?7
  6. ESBRIET [Suspect]
     Active Substance: PIRFENIDONE
     Dosage: ONWARD
  7. OMEPRAZOLE. [Concomitant]
     Active Substance: OMEPRAZOLE
  8. AMLODIPINE [Concomitant]
     Active Substance: AMLODIPINE BESYLATE
  9. ESBRIET [Suspect]
     Active Substance: PIRFENIDONE
     Dosage: DAYS 8?14
  10. EXTRA ACTION SYRUP [Concomitant]

REACTIONS (3)
  - Drug dose omission [None]
  - Fatigue [None]
  - Abdominal discomfort [None]

NARRATIVE: CASE EVENT DATE: 201806
